FAERS Safety Report 9456291 (Version 10)
Quarter: 2015Q4

REPORT INFORMATION
  Report Type: Spontaneous
  Country: US (occurrence: US)
  Receive Date: 20130813
  Receipt Date: 20151021
  Transmission Date: 20160305
  Serious: Yes (Hospitalization, Other)
  Sender: FDA-Public Use
  Company Number: US-GLAXOSMITHKLINE-A1036466A

PATIENT
  Age: 76 Year
  Sex: Female

DRUGS (15)
  1. ADVAIR DISKUS [Suspect]
     Active Substance: FLUTICASONE PROPIONATE\SALMETEROL XINAFOATE
     Indication: ASTHMA
  2. VITAMIN E [Concomitant]
     Active Substance: .ALPHA.-TOCOPHEROL
  3. TEMAZEPAM. [Concomitant]
     Active Substance: TEMAZEPAM
  4. ADVAIR DISKUS [Suspect]
     Active Substance: FLUTICASONE PROPIONATE\SALMETEROL XINAFOATE
     Indication: BRONCHITIS
     Dosage: UNK
  5. FUROSEMIDE. [Concomitant]
     Active Substance: FUROSEMIDE
  6. ADVAIR DISKUS [Suspect]
     Active Substance: FLUTICASONE PROPIONATE\SALMETEROL XINAFOATE
     Indication: CHRONIC OBSTRUCTIVE PULMONARY DISEASE
     Dosage: 1 PUFF(S), BID
     Route: 055
     Dates: start: 2001
  7. LOW DOSE ASPIRIN [Concomitant]
     Active Substance: ASPIRIN
  8. ALBUTEROL INHALER [Concomitant]
     Active Substance: ALBUTEROL
  9. LEVOFLOXACIN. [Concomitant]
     Active Substance: LEVOFLOXACIN
  10. GARLIC. [Concomitant]
     Active Substance: GARLIC
  11. CALCIUM [Concomitant]
     Active Substance: CALCIUM
  12. DILTIAZEM [Concomitant]
     Active Substance: DILTIAZEM
  13. PANTOPRAZOLE [Concomitant]
     Active Substance: PANTOPRAZOLE SODIUM
  14. PREDNISONE. [Concomitant]
     Active Substance: PREDNISONE
  15. CETIRIZINE [Concomitant]
     Active Substance: CETIRIZINE HYDROCHLORIDE

REACTIONS (17)
  - Cough [Not Recovered/Not Resolved]
  - Fatigue [Unknown]
  - Depression [Not Recovered/Not Resolved]
  - Hospitalisation [Unknown]
  - Emotional disorder [Not Recovered/Not Resolved]
  - Eye disorder [Unknown]
  - Anaemia [Not Recovered/Not Resolved]
  - Pneumonia [Recovered/Resolved]
  - Macular degeneration [Not Recovered/Not Resolved]
  - Immune system disorder [Not Recovered/Not Resolved]
  - Decreased appetite [Unknown]
  - Continuous positive airway pressure [Unknown]
  - Inability to afford medication [Unknown]
  - Malaise [Unknown]
  - Blood potassium decreased [Recovered/Resolved]
  - Hiatus hernia [Not Recovered/Not Resolved]
  - Bronchitis [Recovered/Resolved]

NARRATIVE: CASE EVENT DATE: 201401
